FAERS Safety Report 18228468 (Version 2)
Quarter: 2021Q1

REPORT INFORMATION
  Report Type: Spontaneous
  Country: AR (occurrence: AR)
  Receive Date: 20200903
  Receipt Date: 20210317
  Transmission Date: 20210419
  Serious: Yes (Hospitalization)
  Sender: FDA-Public Use
  Company Number: NVSC2020AR240243

PATIENT
  Age: 83 Year
  Sex: Female

DRUGS (1)
  1. AZARGA [Suspect]
     Active Substance: BRINZOLAMIDE\TIMOLOL MALEATE
     Indication: OCULAR DISCOMFORT
     Dosage: UNK, QD (1 DROP IN EACH EYE, IN THE EVENING, FROM 5 YEARS)
     Route: 047

REACTIONS (4)
  - Cholelithiasis [Recovered/Resolved]
  - Malaise [Unknown]
  - Fall [Unknown]
  - Joint injury [Unknown]

NARRATIVE: CASE EVENT DATE: 20190625
